FAERS Safety Report 13717172 (Version 2)
Quarter: 2017Q3

REPORT INFORMATION
  Report Type: Spontaneous
  Country: FR (occurrence: FR)
  Receive Date: 20170705
  Receipt Date: 20170711
  Transmission Date: 20171127
  Serious: Yes (Death)
  Sender: FDA-Public Use
  Company Number: FR-PFIZER INC-2017281981

PATIENT
  Age: 68 Year
  Sex: Male

DRUGS (9)
  1. PREDNISOLONE. [Concomitant]
     Active Substance: PREDNISOLONE
     Dosage: UNK
  2. TARGRETIN [Concomitant]
     Active Substance: BEXAROTENE
     Dosage: UNK (REDUCED BY HALF)
  3. MYCOPHENOLATE MOFETIL. [Concomitant]
     Active Substance: MYCOPHENOLATE MOFETIL
     Dosage: UNK
  4. GEMCITABINE HYDROCHLORIDE. [Suspect]
     Active Substance: GEMCITABINE HYDROCHLORIDE
     Indication: T-CELL LYMPHOMA
     Dosage: 1000 MG/M2, CYCLIC (AT A RATE OF ONE INFUSION PER WEEK IN THREE OF EVERY FOUR WEEKS)
  5. VALCHLOR [Concomitant]
     Active Substance: MECHLORETHAMINE
     Indication: T-CELL LYMPHOMA
     Dosage: UNK
  6. LEVOTHYROXINE. [Concomitant]
     Active Substance: LEVOTHYROXINE
     Indication: T-CELL LYMPHOMA
     Dosage: UNK
  7. TACROLIMUS. [Concomitant]
     Active Substance: TACROLIMUS
     Dosage: UNK
  8. TARGRETIN [Concomitant]
     Active Substance: BEXAROTENE
     Indication: T-CELL LYMPHOMA
     Dosage: 300 MG/M2, UNK
  9. FENOFIBRATE. [Concomitant]
     Active Substance: FENOFIBRATE
     Indication: T-CELL LYMPHOMA
     Dosage: UNK

REACTIONS (1)
  - Septic shock [Fatal]
